FAERS Safety Report 8614497-4 (Version None)
Quarter: 2012Q3

REPORT INFORMATION
  Report Type: 
  Country: None (occurrence: None)
  Receive Date: 20120823
  Receipt Date: 20120816
  Transmission Date: 20120928
  Serious: Yes (Death, Hospitalization, Other)
  Sender: FDA-Public Use
  Company Number: PHHY2012NL069230

PATIENT
  Sex: Male

DRUGS (4)
  1. ZOMETA [Suspect]
     Dosage: 4 MG/100 ML, 1 X EVERY 28 DAYS
     Route: 042
     Dates: start: 20120611
  2. ZOMETA [Suspect]
     Dosage: 4 MG/100 ML, 1 X EVERY 28 DAYS
     Route: 042
     Dates: start: 20120701
  3. ZOMETA [Suspect]
     Indication: PROSTATE CANCER METASTATIC
     Dosage: 4 MG/100 ML, 1 X EVERY 28 DAYS
     Route: 042
     Dates: start: 20120124
  4. ZOMETA [Suspect]
     Dosage: 4 MG/100 ML, 1 X EVERY 28 DAYS
     Route: 042
     Dates: start: 20120808, end: 20120808

REACTIONS (6)
  - GENERAL PHYSICAL HEALTH DETERIORATION [None]
  - HYPERTENSION [None]
  - CONFUSIONAL STATE [None]
  - DEATH [None]
  - INFECTION [None]
  - DEHYDRATION [None]
